FAERS Safety Report 8895646 (Version 1)
Quarter: 2012Q4

REPORT INFORMATION
  Report Type: Report from Study
  Country: GB (occurrence: GB)
  Receive Date: 20121108
  Receipt Date: 20121108
  Transmission Date: 20130627
  Serious: Yes (Hospitalization)
  Sender: FDA-Public Use
  Company Number: GB-ROCHE-1136273

PATIENT
  Age: 74 Year
  Sex: Female
  Weight: 78 kg

DRUGS (2)
  1. TOCILIZUMAB [Suspect]
     Indication: RHEUMATOID ARTHRITIS
     Route: 065
     Dates: start: 20110909
  2. TOCILIZUMAB [Suspect]
     Route: 065
     Dates: start: 20120713

REACTIONS (2)
  - Impaired healing [Recovered/Resolved]
  - Wound haemorrhage [Recovered/Resolved]
